FAERS Safety Report 7727380-3 (Version None)
Quarter: 2011Q3

REPORT INFORMATION
  Report Type: 
  Country: None (occurrence: None)
  Receive Date: 20110902
  Receipt Date: 20110830
  Transmission Date: 20111222
  Serious: Yes (Death)
  Sender: FDA-Public Use
  Company Number: US-PFIZER INC-2011183578

PATIENT
  Sex: Male

DRUGS (5)
  1. POTASSIUM CHLORIDE [Concomitant]
     Dosage: 10 UNK, 1X/DAY
  2. SUTENT [Suspect]
     Indication: RENAL CELL CARCINOMA
     Dosage: 25 MG, 1X/DAY
     Route: 048
     Dates: start: 20110610, end: 20110721
  3. LASIX [Concomitant]
     Indication: CARDIAC FAILURE CONGESTIVE
     Dosage: 20 UNK, 1X/DAY
     Dates: start: 20101208
  4. CARDIZEM [Concomitant]
     Indication: HYPERTENSION
     Dosage: 120 UNK, 1X/DAY
  5. UROXATRAL [Concomitant]
     Dosage: 10 UNK, 1X/DAY

REACTIONS (1)
  - DEATH [None]
